FAERS Safety Report 16776994 (Version 1)
Quarter: 2019Q3

REPORT INFORMATION
  Report Type: Report from Study
  Country: US (occurrence: US)
  Receive Date: 20190905
  Receipt Date: 20190905
  Transmission Date: 20191005
  Serious: Yes (Hospitalization, Other)
  Sender: FDA-Public Use
  Company Number: US-BAUSCH-BL-2019-024693

PATIENT
  Sex: Male
  Weight: 81.72 kg

DRUGS (3)
  1. APRISO [Suspect]
     Active Substance: MESALAMINE
     Indication: COLITIS ULCERATIVE
     Dosage: 1-2 YEARS AGO?OUT OF MEDICATION FOR A FEW WEEKS
     Route: 048
     Dates: end: 2019
  2. HUMIRA [Concomitant]
     Active Substance: ADALIMUMAB
     Indication: PRODUCT USED FOR UNKNOWN INDICATION
  3. APRISO [Suspect]
     Active Substance: MESALAMINE
     Dosage: RESTARTED?OUT OF MEDICATION COUPLE DAYS AGO
     Route: 048
     Dates: start: 2019, end: 201908

REACTIONS (4)
  - Product distribution issue [Unknown]
  - Hospitalisation [Recovered/Resolved]
  - Haematochezia [Not Recovered/Not Resolved]
  - Therapy cessation [Unknown]

NARRATIVE: CASE EVENT DATE: 2019
